FAERS Safety Report 14454135 (Version 2)
Quarter: 2018Q1

REPORT INFORMATION
  Report Type: Spontaneous
  Country: US (occurrence: US)
  Receive Date: 20180129
  Receipt Date: 20180223
  Transmission Date: 20180509
  Serious: Yes (Death, Hospitalization, Other)
  Sender: FDA-Public Use
  Company Number: US-PFIZER INC-2018038257

PATIENT
  Age: 74 Year
  Sex: Female
  Weight: 54 kg

DRUGS (1)
  1. AROMASIN [Suspect]
     Active Substance: EXEMESTANE
     Indication: BREAST CANCER
     Dosage: 25 MG, 1X/DAY (1 TAB AFTER DINNER)

REACTIONS (8)
  - Decreased appetite [Fatal]
  - Malaise [Fatal]
  - Dizziness [Fatal]
  - Peripheral swelling [Fatal]
  - Renal failure [Fatal]
  - Asthenia [Fatal]
  - Cardiac disorder [Fatal]
  - Nausea [Fatal]

NARRATIVE: CASE EVENT DATE: 20180101
